FAERS Safety Report 7439011-0 (Version None)
Quarter: 2011Q2

REPORT INFORMATION
  Report Type: 
  Country: None (occurrence: None)
  Receive Date: 20110427
  Receipt Date: 20110421
  Transmission Date: 20111010
  Serious: Yes (Hospitalization)
  Sender: FDA-Public Use
  Company Number: BE-BIOGENIDEC-2011BI013310

PATIENT
  Age: 37 Year
  Sex: Female

DRUGS (3)
  1. TYSABRI [Suspect]
     Indication: RELAPSING-REMITTING MULTIPLE SCLEROSIS
     Route: 042
     Dates: start: 20080527
  2. CIALIS [Concomitant]
     Indication: ERECTILE DYSFUNCTION
     Dates: start: 20080901
  3. EMSELEX [Concomitant]
     Indication: HYPERTONIC BLADDER
     Dates: start: 20080401

REACTIONS (1)
  - HAEMORRHOIDS [None]
